FAERS Safety Report 12278336 (Version 3)
Quarter: 2016Q2

REPORT INFORMATION
  Report Type: Spontaneous
  Country: US (occurrence: US)
  Receive Date: 20160418
  Receipt Date: 20160614
  Transmission Date: 20160815
  Serious: Yes (Other)
  Sender: FDA-Public Use
  Company Number: US-APOTEX-2016AP007696

PATIENT
  Age: 66 Year
  Sex: Female

DRUGS (2)
  1. SOTALOL HYDROCHLORIDE. [Suspect]
     Active Substance: SOTALOL HYDROCHLORIDE
     Indication: VENTRICULAR FIBRILLATION
  2. SOTALOL HYDROCHLORIDE. [Suspect]
     Active Substance: SOTALOL HYDROCHLORIDE
     Indication: VENTRICULAR TACHYCARDIA
     Dosage: 80 MG, BID
     Route: 065
     Dates: start: 201601, end: 20160402

REACTIONS (4)
  - Ventricular extrasystoles [Recovering/Resolving]
  - Product substitution issue [Unknown]
  - Palpitations [Unknown]
  - Drug ineffective [Recovering/Resolving]

NARRATIVE: CASE EVENT DATE: 20160122
